FAERS Safety Report 20610205 (Version 1)
Quarter: 2022Q1

REPORT INFORMATION
  Report Type: Spontaneous
  Country: US (occurrence: US)
  Receive Date: 20220318
  Receipt Date: 20220318
  Transmission Date: 20220423
  Serious: No
  Sender: FDA-Public Use
  Company Number: US-ORGANON-O2203USA001601

PATIENT
  Sex: Female

DRUGS (6)
  1. FOLLISTIM AQ [Suspect]
     Active Substance: FOLLITROPIN
     Indication: Infertility female
     Dosage: INJECT 75 UNITS UNDER THE SKIN DAILY (STRENGTH: 300 IU/0.36 ML 1=1)
     Route: 058
     Dates: start: 20210921
  2. PREGNYL [Suspect]
     Active Substance: CHORIOGONADOTROPIN ALFA
     Indication: Infertility female
     Dosage: 10000 INTERNATIONAL UNIT, ONCE FOR 1 DOSE
     Route: 030
     Dates: start: 20211016
  3. STERILE DILUENT (WATER) [Suspect]
     Active Substance: WATER
     Dosage: UNK
  4. CETIRIZINE HCL [Concomitant]
     Active Substance: CETIRIZINE HYDROCHLORIDE
     Dosage: UNK
  5. PRENATAL [FERROUS SULFATE;FOLIC ACID;ZINC] [Concomitant]
     Dosage: UNK
     Route: 048
  6. PROBIOTIC CHEWABLE [Concomitant]
     Dosage: UNK
     Route: 048

REACTIONS (2)
  - Injection site reaction [Unknown]
  - Injection site pain [Unknown]
